FAERS Safety Report 15782645 (Version 1)
Quarter: 2019Q1

REPORT INFORMATION
  Report Type: Spontaneous
  Country: UA (occurrence: UA)
  Receive Date: 20190102
  Receipt Date: 20190102
  Transmission Date: 20190417
  Serious: Yes (Other)
  Sender: FDA-Public Use
  Company Number: UA-BAUSCH-BL-2018-036237

PATIENT
  Age: 35 Year
  Sex: Male

DRUGS (1)
  1. ELIDEL [Suspect]
     Active Substance: PIMECROLIMUS
     Indication: DERMATITIS ATOPIC
     Dosage: ONCE (DAILY DOSE)
     Route: 061
     Dates: start: 201712

REACTIONS (1)
  - Drug ineffective [Not Recovered/Not Resolved]

NARRATIVE: CASE EVENT DATE: 20181223
